FAERS Safety Report 5621397-0 (Version None)
Quarter: 2008Q1

REPORT INFORMATION
  Report Type: 
  Country: None (occurrence: None)
  Receive Date: 20080211
  Receipt Date: 20080131
  Transmission Date: 20080703
  Serious: Yes (Hospitalization)
  Sender: FDA-Public Use
  Company Number: JP-JNJFOC-20080102310

PATIENT
  Sex: Male
  Weight: 65 kg

DRUGS (10)
  1. REMICADE [Suspect]
     Route: 042
  2. REMICADE [Suspect]
     Indication: CROHN'S DISEASE
     Route: 042
  3. IMURAN [Suspect]
     Indication: CROHN'S DISEASE
     Route: 048
  4. PREDONINE [Concomitant]
     Indication: CROHN'S DISEASE
     Route: 048
  5. PENTASA [Concomitant]
     Indication: CROHN'S DISEASE
     Route: 048
  6. ELENTAL [Concomitant]
     Indication: CROHN'S DISEASE
     Dosage: 3 STICKS PER DAY
     Route: 048
  7. ACINON [Concomitant]
     Indication: GASTRIC ULCER
     Route: 048
  8. ALFAROL [Concomitant]
     Indication: OSTEOPOROSIS
     Route: 048
  9. ASPARA-CA [Concomitant]
     Indication: OSTEOPOROSIS
     Route: 048
  10. FERROMIA [Concomitant]
     Indication: ANAEMIA
     Route: 048

REACTIONS (1)
  - PNEUMONIA LEGIONELLA [None]
